FAERS Safety Report 23942410 (Version 1)
Quarter: 2024Q2

REPORT INFORMATION
  Report Type: Spontaneous
  Country: US (occurrence: US)
  Receive Date: 20240605
  Receipt Date: 20240605
  Transmission Date: 20240716
  Serious: No
  Sender: FDA-Public Use
  Company Number: US-ABBVIE-5784802

PATIENT
  Sex: Female

DRUGS (1)
  1. CREON [Suspect]
     Active Substance: PANCRELIPASE AMYLASE\PANCRELIPASE LIPASE\PANCRELIPASE PROTEASE
     Indication: Pancreatic failure
     Dosage: TAKING 3 OF THE 24K PILLS
     Route: 048

REACTIONS (5)
  - Asthenia [Unknown]
  - Incorrect dose administered [Unknown]
  - Diabetes mellitus [Unknown]
  - Therapeutic product effect decreased [Unknown]
  - Unevaluable event [Unknown]
